FAERS Safety Report 7569929-X (Version None)
Quarter: 2011Q2

REPORT INFORMATION
  Report Type: 
  Country: None (occurrence: None)
  Receive Date: 20110624
  Receipt Date: 20110616
  Transmission Date: 20111010
  Serious: Yes (Other)
  Sender: FDA-Public Use
  Company Number: BR-AMGEN-BRASP2011031570

PATIENT
  Age: 60 Year
  Sex: Female

DRUGS (4)
  1. ENBREL [Suspect]
     Indication: PSORIATIC ARTHROPATHY
     Dosage: 25 MG, 2X/WEEK
     Route: 058
     Dates: start: 20070101, end: 20080101
  2. ENBREL [Suspect]
     Dosage: UNK
     Dates: end: 20110101
  3. METHOTREXATE [Concomitant]
     Dosage: UNK
  4. ARAVA [Concomitant]
     Dosage: UNK

REACTIONS (2)
  - GASTRIC DISORDER [None]
  - PSORIATIC ARTHROPATHY [None]
